FAERS Safety Report 6346510-1 (Version None)
Quarter: 2009Q3

REPORT INFORMATION
  Report Type: 
  Country: None (occurrence: None)
  Receive Date: 20090909
  Receipt Date: 20090828
  Transmission Date: 20100115
  Serious: Yes (Other)
  Sender: FDA-Public Use
  Company Number: US-ELI_LILLY_AND_COMPANY-US200909000063

PATIENT
  Age: 81 Year
  Sex: Female

DRUGS (4)
  1. EVISTA [Suspect]
     Dosage: UNK, UNKNOWN
     Route: 065
     Dates: start: 19990101, end: 20090801
  2. ALTACE [Concomitant]
     Dosage: UNK, UNKNOWN
     Route: 065
  3. NITRO /00003201/ [Concomitant]
     Indication: CARDIAC DISORDER
     Dosage: UNK, UNKNOWN
     Route: 065
  4. NITRO                              /00003201/ [Concomitant]
     Dosage: UNK, UNKNOWN
     Route: 065

REACTIONS (1)
  - ANGINA PECTORIS [None]
